FAERS Safety Report 8047938-4 (Version None)
Quarter: 2012Q1

REPORT INFORMATION
  Report Type: 
  Country: None (occurrence: None)
  Receive Date: 20120116
  Receipt Date: 20120103
  Transmission Date: 20120608
  Serious: Yes (Hospitalization)
  Sender: FDA-Public Use
  Company Number: CA-ABBOTT-12P-028-0890392-01

PATIENT
  Sex: Male

DRUGS (9)
  1. SIMVASTATIN [Concomitant]
     Indication: ARTERIOSCLEROSIS
     Route: 048
     Dates: start: 20071217, end: 20110517
  2. SIMVASTATIN [Concomitant]
     Indication: DYSLIPIDAEMIA
  3. BETA-BLOCKERS [Concomitant]
     Indication: PRODUCT USED FOR UNKNOWN INDICATION
  4. NIASPAN [Suspect]
     Indication: ARTERIOSCLEROSIS
     Route: 048
     Dates: start: 20071217, end: 20110517
  5. NIASPAN [Suspect]
     Indication: DYSLIPIDAEMIA
  6. ASPIRIN [Concomitant]
     Indication: PRODUCT USED FOR UNKNOWN INDICATION
  7. WARFARIN OR HEPARIN ANALOG [Concomitant]
     Indication: PRODUCT USED FOR UNKNOWN INDICATION
  8. DIURETICS [Concomitant]
     Indication: PRODUCT USED FOR UNKNOWN INDICATION
  9. CALCIUM CHANNEL BLOCKERS [Concomitant]
     Indication: PRODUCT USED FOR UNKNOWN INDICATION

REACTIONS (2)
  - RECTAL HAEMORRHAGE [None]
  - ANAEMIA [None]
